FAERS Safety Report 6595207-1 (Version None)
Quarter: 2010Q1

REPORT INFORMATION
  Report Type: 
  Country: None (occurrence: None)
  Receive Date: 20100212
  Receipt Date: 20100201
  Transmission Date: 20100710
  Serious: Yes (Other)
  Sender: FDA-Public Use
  Company Number: 1022556-2010-00010

PATIENT
  Age: 26 Year
  Sex: Male

DRUGS (1)
  1. ACT FLUORIDE RINSE MINT, 0.05% NAF [Suspect]
     Indication: DENTAL DISORDER PROPHYLAXIS
     Dosage: 10 ML, BID, MOUTHRINSE

REACTIONS (4)
  - ABDOMINAL DISCOMFORT [None]
  - BLOOD CALCIUM INCREASED [None]
  - INAPPROPRIATE SCHEDULE OF DRUG ADMINISTRATION [None]
  - PAIN [None]
